FAERS Safety Report 13757756 (Version 1)
Quarter: 2017Q3

REPORT INFORMATION
  Report Type: Spontaneous
  Country: BR (occurrence: BR)
  Receive Date: 20170717
  Receipt Date: 20170717
  Transmission Date: 20171127
  Serious: Yes (Other)
  Sender: FDA-Public Use
  Company Number: BR-ROCHE-1960366

PATIENT
  Sex: Male

DRUGS (3)
  1. RIVOTRIL [Suspect]
     Active Substance: CLONAZEPAM
     Indication: NERVOUSNESS
  2. LIMBITROL [Suspect]
     Active Substance: AMITRIPTYLINE\CHLORDIAZEPOXIDE
     Indication: PRODUCT USED FOR UNKNOWN INDICATION
     Route: 065
  3. RIVOTRIL [Suspect]
     Active Substance: CLONAZEPAM
     Indication: ANXIETY
     Dosage: 2.5MG/ML DROPS FOR 4 OR 5 MONTHS
     Route: 065

REACTIONS (10)
  - Chest pain [Unknown]
  - Flatulence [Unknown]
  - Lethargy [Unknown]
  - Dizziness [Unknown]
  - Vomiting [Unknown]
  - Insomnia [Unknown]
  - Blood pressure increased [Not Recovered/Not Resolved]
  - Ill-defined disorder [Unknown]
  - Somnolence [Unknown]
  - Feeling abnormal [Unknown]
